FAERS Safety Report 5270986-4 (Version None)
Quarter: 2007Q1

REPORT INFORMATION
  Report Type: 
  Country: None (occurrence: None)
  Receive Date: 20070321
  Receipt Date: 20070312
  Transmission Date: 20070707
  Serious: Yes (Life-Threatening, Hospitalization)
  Sender: FDA-Public Use
  Company Number: TR-AVENTIS-200712240GDDC

PATIENT
  Age: 19 Year
  Sex: Male
  Weight: 70 kg

DRUGS (2)
  1. KETEK [Suspect]
     Indication: COUGH
     Route: 048
     Dates: start: 20061110, end: 20061112
  2. NAC 600 [Suspect]
     Indication: COUGH
     Dosage: DOSE QUANTITY: 1
     Route: 048
     Dates: start: 20061110, end: 20061112

REACTIONS (1)
  - TOXIC EPIDERMAL NECROLYSIS [None]
